FAERS Safety Report 12085887 (Version 1)
Quarter: 2016Q1

REPORT INFORMATION
  Report Type: Spontaneous
  Country: US (occurrence: US)
  Receive Date: 20160217
  Receipt Date: 20160217
  Transmission Date: 20160526
  Serious: No
  Sender: FDA-Public Use
  Company Number: GXBR2016US000476

PATIENT
  Age: 18 Month
  Sex: Female
  Weight: 9.7 kg

DRUGS (1)
  1. NYSTATIN. [Suspect]
     Active Substance: NYSTATIN
     Indication: DERMATITIS DIAPER
     Dosage: UNK DF, 2 TO 3 TIMES DAILY
     Route: 061
     Dates: start: 20151231

REACTIONS (1)
  - Drug ineffective [Not Recovered/Not Resolved]
